FAERS Safety Report 15318956 (Version 1)
Quarter: 2018Q3

REPORT INFORMATION
  Report Type: Spontaneous
  Country: US (occurrence: US)
  Receive Date: 20180820
  Receipt Date: 20180820
  Transmission Date: 20181010
  Serious: No
  Sender: FDA-Public Use
  Company Number: None

PATIENT
  Age: 72 Year
  Sex: Male

DRUGS (1)
  1. NEXAVAR [Suspect]
     Active Substance: SORAFENIB
     Route: 048
     Dates: start: 20180627

REACTIONS (6)
  - Dental operation [None]
  - Impaired healing [None]
  - Gingival disorder [None]
  - Deafness unilateral [None]
  - Exposed bone in jaw [None]
  - Middle ear disorder [None]

NARRATIVE: CASE EVENT DATE: 20180716
